FAERS Safety Report 24532830 (Version 1)
Quarter: 2024Q4

REPORT INFORMATION
  Report Type: Spontaneous
  Country: GB (occurrence: GB)
  Receive Date: 20241022
  Receipt Date: 20241022
  Transmission Date: 20250115
  Serious: Yes (Hospitalization)
  Sender: TEVA
  Company Number: GB-002147023-PHHO2017GB011193

PATIENT
  Age: 81 Year
  Sex: Male
  Weight: 69 kg

DRUGS (17)
  1. METFORMIN [Suspect]
     Active Substance: METFORMIN HYDROCHLORIDE
     Indication: Diabetes mellitus
     Dosage: 500 MG, BID,
     Route: 048
     Dates: start: 20170117
  2. OFATUMUMAB [Suspect]
     Active Substance: OFATUMUMAB
     Indication: Chronic lymphocytic leukaemia
     Dosage: 1300 MG, OFATUMUMAB 1889+CSOLINF+I,
     Route: 042
     Dates: start: 20170628, end: 20170705
  3. ONDANSETRON HYDROCHLORIDE [Suspect]
     Active Substance: ONDANSETRON HYDROCHLORIDE
     Indication: Antiemetic supportive care
     Dosage: 8 MG, BID,
     Route: 048
  4. ACETAMINOPHEN [Concomitant]
     Active Substance: ACETAMINOPHEN
  5. CHLORPHENIRAMINE [Concomitant]
     Active Substance: CHLORPHENIRAMINE
  6. HYDROCORTISONE [Concomitant]
     Active Substance: HYDROCORTISONE
  7. ALLOPURINOL [Concomitant]
     Active Substance: ALLOPURINOL
  8. METOCLOPRAMIDE [Concomitant]
     Active Substance: METOCLOPRAMIDE
  9. ACYCLOVIR [Concomitant]
     Active Substance: ACYCLOVIR
  10. GRANULOCYTE COLONY-STIMULATING FACTOR NOS [Concomitant]
     Active Substance: GRANULOCYTE COLONY-STIMULATING FACTOR NOS
  11. COTRIMOXAZOLE [Concomitant]
     Active Substance: SULFAMETHOXAZOLE\TRIMETHOPRIM
  12. LANTUS [Concomitant]
     Active Substance: INSULIN GLARGINE
  13. NOVORAPID [Concomitant]
     Active Substance: INSULIN ASPART
  14. BISACODYL [Concomitant]
     Active Substance: BISACODYL
  15. SIMVASTATIN [Concomitant]
     Active Substance: SIMVASTATIN
  16. PREDNISONE [Concomitant]
     Active Substance: PREDNISONE
  17. LACTULOSE [Concomitant]
     Active Substance: LACTULOSE

REACTIONS (2)
  - Urinary retention [Recovered/Resolved]
  - Constipation [Recovered/Resolved]

NARRATIVE: CASE EVENT DATE: 20170711
